FAERS Safety Report 17878472 (Version 1)
Quarter: 2020Q2

REPORT INFORMATION
  Report Type: Spontaneous
  Country: IT (occurrence: IT)
  Receive Date: 20200610
  Receipt Date: 20200610
  Transmission Date: 20200714
  Serious: Yes (Hospitalization)
  Sender: FDA-Public Use
  Company Number: IT-TEVA-2020-IT-1246807

PATIENT
  Age: 59 Year
  Sex: Male

DRUGS (2)
  1. PARACETAMOL [Concomitant]
     Active Substance: ACETAMINOPHEN
     Indication: PAIN
     Dates: start: 20200430, end: 20200501
  2. KETOPROFEN. [Suspect]
     Active Substance: KETOPROFEN
     Indication: ARTHRALGIA
     Route: 048
     Dates: start: 20200401, end: 20200501

REACTIONS (2)
  - Rectal haemorrhage [Recovered/Resolved]
  - Terminal ileitis [Recovered/Resolved]

NARRATIVE: CASE EVENT DATE: 20200501
